FAERS Safety Report 14510953 (Version 1)
Quarter: 2018Q1

REPORT INFORMATION
  Report Type: Spontaneous
  Country: US (occurrence: US)
  Receive Date: 20180209
  Receipt Date: 20180209
  Transmission Date: 20180509
  Serious: No
  Sender: FDA-Public Use
  Company Number: US-BAYER-2018-024198

PATIENT
  Age: 50 Year
  Sex: Female
  Weight: 162 kg

DRUGS (7)
  1. VITAMIN D [Concomitant]
     Active Substance: CHOLECALCIFEROL
  2. LAMICTAL [Concomitant]
     Active Substance: LAMOTRIGINE
  3. KEPPRA [Concomitant]
     Active Substance: LEVETIRACETAM
  4. ONE A DAY WOMEN^S [Concomitant]
     Active Substance: MINERALS\VITAMINS
  5. ALEVE [Suspect]
     Active Substance: NAPROXEN SODIUM
     Indication: PAIN
     Dosage: UNK
     Route: 048
  6. ALEVE [Concomitant]
     Active Substance: NAPROXEN SODIUM
  7. ALLEGRA [Concomitant]
     Active Substance: FEXOFENADINE HYDROCHLORIDE

REACTIONS (1)
  - Incorrect dosage administered [Unknown]
